FAERS Safety Report 10725054 (Version 1)
Quarter: 2015Q1

REPORT INFORMATION
  Report Type: Spontaneous
  Country: US (occurrence: None)
  Receive Date: 20150116
  Receipt Date: 20150116
  Transmission Date: 20150721
  Serious: Yes (Other)
  Sender: FDA-Public Use
  Company Number: 2015SUP00006

PATIENT
  Age: 53 Year
  Sex: Male
  Weight: 154.2 kg

DRUGS (3)
  1. LAMICTAL [Concomitant]
     Active Substance: LAMOTRIGINE
  2. APTIOM [Suspect]
     Active Substance: ESLICARBAZEPINE ACETATE
     Indication: PARTIAL SEIZURES
     Dosage: 1X/DAY
     Route: 048
     Dates: start: 2014
  3. OXTELLAR XR [Suspect]
     Active Substance: OXCARBAZEPINE
     Indication: PARTIAL SEIZURES

REACTIONS (3)
  - Somnolence [None]
  - Seizure [None]
  - Ataxia [None]

NARRATIVE: CASE EVENT DATE: 2014
